FAERS Safety Report 13662125 (Version 9)
Quarter: 2018Q1

REPORT INFORMATION
  Report Type: Report from Study
  Country: US (occurrence: US)
  Receive Date: 20170616
  Receipt Date: 20180202
  Transmission Date: 20180508
  Serious: Yes (Hospitalization)
  Sender: FDA-Public Use
  Company Number: US-ACTELION-A-NJ2017-151891

PATIENT
  Age: 60 Year
  Sex: Female
  Weight: 46.26 kg

DRUGS (6)
  1. ORENITRAM [Concomitant]
     Active Substance: TREPROSTINIL
  2. TYVASO [Suspect]
     Active Substance: TREPROSTINIL
     Indication: PRODUCT USED FOR UNKNOWN INDICATION
     Dosage: 9 BREATHS, QID
     Route: 055
  3. OPSUMIT [Suspect]
     Active Substance: MACITENTAN
     Indication: PULMONARY ARTERIAL HYPERTENSION
     Dosage: 10 MG, QD
     Route: 048
  4. OPSUMIT [Suspect]
     Active Substance: MACITENTAN
     Dosage: UNK
     Route: 048
  5. TYVASO [Suspect]
     Active Substance: TREPROSTINIL
     Dosage: UNK
     Route: 055
  6. REVATIO [Concomitant]
     Active Substance: SILDENAFIL CITRATE

REACTIONS (24)
  - Sinus congestion [Unknown]
  - Fluid retention [Unknown]
  - Nasal dryness [Unknown]
  - Influenza [Unknown]
  - Gastrointestinal disorder [Unknown]
  - Tremor [Unknown]
  - Pollakiuria [Unknown]
  - Syncope [Unknown]
  - Pneumonia [Unknown]
  - Respiratory rate decreased [Unknown]
  - Dyspnoea [Unknown]
  - Pain [Unknown]
  - Haematuria [Unknown]
  - Abdominal discomfort [Unknown]
  - Fall [Unknown]
  - Unevaluable event [Unknown]
  - Dry mouth [Unknown]
  - Oropharyngeal pain [Unknown]
  - Nasal congestion [Unknown]
  - Nausea [Unknown]
  - Dysphonia [Unknown]
  - Dialysis related complication [Unknown]
  - Bronchitis [Unknown]
  - Blood pressure decreased [Unknown]

NARRATIVE: CASE EVENT DATE: 201703
